FAERS Safety Report 9403865 (Version 2)
Quarter: 2013Q3

REPORT INFORMATION
  Report Type: Spontaneous
  Country: US (occurrence: US)
  Receive Date: 20130717
  Receipt Date: 20130911
  Transmission Date: 20140515
  Serious: No
  Sender: FDA-Public Use
  Company Number: US-BIOGENIDEC-2013BI055541

PATIENT
  Age: 65 Year
  Sex: Female

DRUGS (3)
  1. TYSABRI [Suspect]
     Indication: MULTIPLE SCLEROSIS
     Route: 042
     Dates: start: 20120123, end: 20130617
  2. AVONEX [Concomitant]
     Indication: MULTIPLE SCLEROSIS
     Route: 030
  3. REQUIP XL [Concomitant]
     Indication: RESTLESS LEGS SYNDROME
     Dates: start: 20120123

REACTIONS (5)
  - Drug ineffective [Unknown]
  - Drug specific antibody present [Not Recovered/Not Resolved]
  - Dyspnoea [Unknown]
  - Pruritus [Unknown]
  - Urticaria [Unknown]
